FAERS Safety Report 20745598 (Version 1)
Quarter: 2022Q2

REPORT INFORMATION
  Report Type: Spontaneous
  Country: US (occurrence: US)
  Receive Date: 20220425
  Receipt Date: 20220425
  Transmission Date: 20220720
  Serious: No
  Sender: FDA-Public Use
  Company Number: US-PFIZER INC-202101008476

PATIENT
  Age: 73 Year
  Sex: Female

DRUGS (1)
  1. AZITHROMYCIN [Suspect]
     Active Substance: AZITHROMYCIN
     Dosage: 250 MG

REACTIONS (3)
  - Blood glucose increased [Unknown]
  - Sinusitis [Unknown]
  - Cough [Unknown]
